FAERS Safety Report 4936596-0 (Version None)
Quarter: 2006Q1

REPORT INFORMATION
  Report Type: 
  Country: None (occurrence: None)
  Receive Date: 20060307
  Receipt Date: 20060301
  Transmission Date: 20060701
  Serious: Yes (Hospitalization)
  Sender: FDA-Public Use
  Company Number: US-MERCK-0603USA00110

PATIENT
  Sex: Female

DRUGS (1)
  1. PRINIVIL [Suspect]
     Indication: BLOOD PRESSURE
     Route: 048
     Dates: start: 19910101

REACTIONS (1)
  - BLOOD PRESSURE INCREASED [None]
